FAERS Safety Report 5283696-4 (Version None)
Quarter: 2007Q2

REPORT INFORMATION
  Report Type: 
  Country: None (occurrence: None)
  Receive Date: 20070402
  Receipt Date: 20070312
  Transmission Date: 20071010
  Serious: Yes (Other)
  Sender: FDA-Public Use
  Company Number: US-SANOFI-SYNTHELABO-A03200702156

PATIENT
  Sex: Male

DRUGS (1)
  1. AMBIEN [Suspect]
     Indication: INSOMNIA
     Route: 048
     Dates: start: 20011212, end: 20050105

REACTIONS (7)
  - AMNESIA [None]
  - FALL [None]
  - INJURY [None]
  - JOINT DISLOCATION [None]
  - ROTATOR CUFF SYNDROME [None]
  - SLEEP WALKING [None]
  - UPPER LIMB FRACTURE [None]
